FAERS Safety Report 13213619 (Version 1)
Quarter: 2017Q1

REPORT INFORMATION
  Report Type: Spontaneous
  Country: US (occurrence: US)
  Receive Date: 20170210
  Receipt Date: 20170210
  Transmission Date: 20170428
  Serious: No
  Sender: FDA-Public Use
  Company Number: US-PERRIGO-16US017188

PATIENT
  Age: 76 Year
  Sex: Female
  Weight: 58.5 kg

DRUGS (6)
  1. NU-DERM BLENDER [Suspect]
     Active Substance: HYDROQUINONE
     Dosage: UNKNOWN, SINGLE AT NIGHT
     Route: 061
     Dates: start: 20160608, end: 20160608
  2. NU-DERM CLEAR [Suspect]
     Active Substance: HYDROQUINONE
     Dosage: UNKNOWN, SINGLE IN THE MORNING
     Route: 061
     Dates: start: 20160608, end: 20160608
  3. NU-DERM BLENDER [Suspect]
     Active Substance: HYDROQUINONE
     Indication: SKIN DISORDER
     Dosage: UNKNOWN, SINGLE AT NIGHT
     Route: 061
     Dates: start: 20160606, end: 20160606
  4. NU-DERM CLEAR [Suspect]
     Active Substance: HYDROQUINONE
     Indication: SKIN DISORDER
     Dosage: UNKNOWN, SINGLE IN THE MORNING
     Route: 061
     Dates: start: 20160606, end: 20160606
  5. TRETINOIN. [Suspect]
     Active Substance: TRETINOIN
     Indication: SKIN DISORDER
     Dosage: UNKNOWN, SINGLE AT NIGHT
     Route: 061
     Dates: start: 20160606, end: 20160606
  6. TRETINOIN. [Suspect]
     Active Substance: TRETINOIN
     Dosage: UNKNOWN, SINGLE AT NIGHT
     Route: 061
     Dates: start: 20160608, end: 20160608

REACTIONS (2)
  - Application site rash [Recovering/Resolving]
  - Dry skin [Recovering/Resolving]

NARRATIVE: CASE EVENT DATE: 20160608
